FAERS Safety Report 7396223-2 (Version None)
Quarter: 2011Q1

REPORT INFORMATION
  Report Type: 
  Country: None (occurrence: None)
  Receive Date: 20110301
  Receipt Date: 20101130
  Transmission Date: 20110831
  Serious: Yes (Life-Threatening, Other)
  Sender: FDA-Public Use
  Company Number: 2211100-US-JNJFOC-20100809237

PATIENT
  Age: 47 Year
  Sex: Male
  Weight: 85.1 kg

DRUGS (5)
  1. PANTOPRAZOLE [Concomitant]
  2. FERROUS SULFATE TAB [Concomitant]
  3. ALTACE [Concomitant]
  4. MOTRIN [Suspect]
     Indication: ARTHRALGIA
     Dosage: 4 IN 1 DAY, ORAL
     Route: 048
     Dates: start: 20100801, end: 20100819
  5. INVESTIGATIONAL DRUG (INVESTIGATIONAL DRUG) UNSPECIFIED [Concomitant]
     Indication: LIPOSARCOMA
     Dosage: 150 MG, 1 IN 1 DAY, ORAL
     Route: 048
     Dates: start: 20060627

REACTIONS (1)
  - HAEMOGLOBIN DECREASED [None]
